FAERS Safety Report 19357272 (Version 1)
Quarter: 2021Q2

REPORT INFORMATION
  Report Type: Spontaneous
  Country: US (occurrence: US)
  Receive Date: 20210602
  Receipt Date: 20210602
  Transmission Date: 20210717
  Serious: No
  Sender: FDA-Public Use
  Company Number: None

PATIENT
  Age: 34 Year
  Sex: Male

DRUGS (1)
  1. ISOVUE 370 [Suspect]
     Active Substance: IOPAMIDOL
     Indication: SCAN WITH CONTRAST
     Dosage: ?          OTHER FREQUENCY:X 1;?
     Route: 042
     Dates: start: 20210601, end: 20210601

REACTIONS (5)
  - Urticaria [None]
  - Chest pain [None]
  - Pruritus [None]
  - Contrast media reaction [None]
  - Erythema [None]

NARRATIVE: CASE EVENT DATE: 20210601
